FAERS Safety Report 5872782-3 (Version None)
Quarter: 2008Q3

REPORT INFORMATION
  Report Type: 
  Country: None (occurrence: None)
  Receive Date: 20080903
  Receipt Date: 20080825
  Transmission Date: 20090109
  Serious: Yes (Other)
  Sender: FDA-Public Use
  Company Number: 08H-163-0314800-00

PATIENT
  Age: 63 Year
  Sex: Male

DRUGS (1)
  1. PROPOFOL [Suspect]
     Indication: SEDATION
     Dosage: 90 MG, INTRAVENOUS
     Route: 042
     Dates: start: 20080101, end: 20080101

REACTIONS (1)
  - STEVENS-JOHNSON SYNDROME [None]
